FAERS Safety Report 5345382-1 (Version None)
Quarter: 2007Q2

REPORT INFORMATION
  Report Type: 
  Country: None (occurrence: None)
  Receive Date: 20070605
  Receipt Date: 20070530
  Transmission Date: 20071010
  Serious: Yes (Other)
  Sender: FDA-Public Use
  Company Number: PHEH2006US15110

PATIENT
  Age: 10 Year
  Sex: Male

DRUGS (4)
  1. TRILEPTAL [Suspect]
     Indication: BIPOLAR DISORDER
     Dosage: 600 MG QAM, 450 MG QHS
     Dates: start: 20051101
  2. ABILIFY [Concomitant]
     Indication: AFFECTIVE DISORDER
     Dosage: 5 MG, UNK
  3. CONCERTA [Concomitant]
     Indication: ATTENTION DEFICIT/HYPERACTIVITY DISORDER
     Dosage: 36 MG, UNK
  4. TRAZODONE HCL [Concomitant]
     Indication: SLEEP DISORDER
     Dosage: 50 MG, UNK

REACTIONS (2)
  - HYPOTHYROIDISM [None]
  - THYROXINE FREE DECREASED [None]
